FAERS Safety Report 16565120 (Version 1)
Quarter: 2019Q3

REPORT INFORMATION
  Report Type: Spontaneous
  Country: US (occurrence: US)
  Receive Date: 20190531
  Receipt Date: 20190531
  Transmission Date: 20191004
  Serious: Yes (Hospitalization)
  Sender: FDA-Public Use
  Company Number: None

PATIENT
  Sex: Male

DRUGS (1)
  1. NEXAVAR [Suspect]
     Active Substance: SORAFENIB
     Indication: BONE CANCER
     Route: 048
     Dates: start: 20190315

REACTIONS (5)
  - Dyspnoea [None]
  - Throat tightness [None]
  - Headache [None]
  - Dysphagia [None]
  - Infection [None]
